FAERS Safety Report 4533866-5 (Version None)
Quarter: 2005Q1

REPORT INFORMATION
  Report Type: 
  Country: None (occurrence: None)
  Receive Date: 20041214
  Receipt Date: 20040910
  Transmission Date: 20050727
  Serious: No
  Sender: FDA-Public Use
  Company Number: US_0409105471

PATIENT
  Age: 49 Year
  Sex: Male
  Weight: 113 kg

DRUGS (5)
  1. CIALIS [Suspect]
     Indication: ERECTILE DYSFUNCTION
     Dosage: 10 MG AS NEEDED
     Dates: start: 20040907
  2. GLUCOPHAGE [Concomitant]
  3. GLYBURIDE [Concomitant]
  4. LANTUS [Concomitant]
  5. VIOXX [Concomitant]

REACTIONS (1)
  - DRUG INEFFECTIVE [None]
